FAERS Safety Report 17064150 (Version 1)
Quarter: 2019Q4

REPORT INFORMATION
  Report Type: Spontaneous
  Country: US (occurrence: US)
  Receive Date: 20191122
  Receipt Date: 20191122
  Transmission Date: 20200122
  Serious: Yes (Other)
  Sender: FDA-Public Use
  Company Number: US-BAYER-2019-209805

PATIENT
  Age: 57 Year
  Sex: Male

DRUGS (10)
  1. HYDROCODONE [Concomitant]
     Active Substance: HYDROCODONE
  2. MELOXICAM. [Concomitant]
     Active Substance: MELOXICAM
  3. HYDROCHLOROTHIAZIDE. [Concomitant]
     Active Substance: HYDROCHLOROTHIAZIDE
  4. SILDENAFIL. [Concomitant]
     Active Substance: SILDENAFIL
  5. ASPIRIN (PAIN AND FEVER) [Suspect]
     Active Substance: ASPIRIN
  6. FOSINOPRIL [Concomitant]
     Active Substance: FOSINOPRIL
  7. CETIRIZINE [Concomitant]
     Active Substance: CETIRIZINE HYDROCHLORIDE
  8. AMLODIPINE [Concomitant]
     Active Substance: AMLODIPINE BESYLATE
  9. CYCLOBENZAPRINE. [Concomitant]
     Active Substance: CYCLOBENZAPRINE
  10. ATORVASTATIN [Concomitant]
     Active Substance: ATORVASTATIN

REACTIONS (1)
  - Eyelid bleeding [None]
